FAERS Safety Report 18075760 (Version 1)
Quarter: 2020Q3

REPORT INFORMATION
  Report Type: Spontaneous
  Country: US (occurrence: US)
  Receive Date: 20200727
  Receipt Date: 20200727
  Transmission Date: 20201103
  Serious: No
  Sender: FDA-Public Use
  Company Number: US-ABBVIE-20K-163-3363951-00

PATIENT
  Sex: Female

DRUGS (1)
  1. LEVOTHYROXINE. [Suspect]
     Active Substance: LEVOTHYROXINE
     Indication: HYPOTHYROIDISM
     Dosage: DRUG STARTED?8?10 YEARS AGO
     Route: 048

REACTIONS (4)
  - Weight increased [Recovered/Resolved]
  - Hunger [Recovered/Resolved]
  - Drug ineffective [Recovered/Resolved]
  - Increased insulin requirement [Recovered/Resolved]
